FAERS Safety Report 7918771-6 (Version None)
Quarter: 2011Q4

REPORT INFORMATION
  Report Type: 
  Country: None (occurrence: None)
  Receive Date: 20111116
  Receipt Date: 20111108
  Transmission Date: 20120403
  Serious: Yes (Other)
  Sender: FDA-Public Use
  Company Number: US-US-EMD SERONO, INC.-7026263

PATIENT
  Sex: Female

DRUGS (2)
  1. TOPAMAX [Concomitant]
     Indication: HEADACHE
  2. REBIF [Suspect]
     Indication: PRODUCT USED FOR UNKNOWN INDICATION
     Route: 058
     Dates: start: 20100423, end: 20111001

REACTIONS (1)
  - OPTIC NEURITIS [None]
